FAERS Safety Report 5902603-1 (Version None)
Quarter: 2008Q3

REPORT INFORMATION
  Report Type: 
  Country: None (occurrence: None)
  Receive Date: 20080926
  Receipt Date: 20080912
  Transmission Date: 20090109
  Serious: Yes (Hospitalization)
  Sender: FDA-Public Use
  Company Number: FABR-1000425

PATIENT
  Age: 55 Year
  Sex: Female
  Weight: 40 kg

DRUGS (1)
  1. FABRAZYME [Suspect]
     Indication: FABRY'S DISEASE
     Dosage: 40 MG, Q2W, INTRAVENOUS
     Route: 042
     Dates: start: 20070617

REACTIONS (6)
  - BLOOD URINE PRESENT [None]
  - CELLULITIS [None]
  - COLONIC POLYP [None]
  - HAEMATOCHEZIA [None]
  - OEDEMA PERIPHERAL [None]
  - PHLEBITIS [None]
